FAERS Safety Report 9812744 (Version 3)
Quarter: 2014Q1

REPORT INFORMATION
  Report Type: Report from Study
  Country: GB (occurrence: GB)
  Receive Date: 20140113
  Receipt Date: 20140327
  Transmission Date: 20141002
  Serious: Yes (Death, Hospitalization)
  Sender: FDA-Public Use
  Company Number: GB-AMGEN-GBRCT2014001911

PATIENT
  Age: 86 Year
  Sex: Female
  Weight: 62 kg

DRUGS (13)
  1. ETANERCEPT [Suspect]
     Indication: RHEUMATOID ARTHRITIS
     Dosage: 25 MG, 2X/WEEK
     Route: 065
     Dates: start: 20040315, end: 20100615
  2. LANSOPRAZOLE [Concomitant]
     Dosage: 30 MG, DAILY
  3. CELECOXIB [Concomitant]
     Dosage: UNK
  4. WARFARIN [Concomitant]
     Dosage: AS PER INR
  5. LIPITOR [Concomitant]
     Dosage: UNK
  6. PERINDOPRIL [Concomitant]
     Dosage: UNK
  7. DIGOXIN [Concomitant]
     Dosage: 125 UG, DAILY
  8. LEVOTHYROXINE [Concomitant]
     Dosage: UNK
  9. BISOPROLOL [Concomitant]
     Dosage: 10 MG, DAILY
  10. FUROSEMIDE [Concomitant]
     Dosage: 40 MG, DAILY
  11. CALCICHEW-D3 [Concomitant]
     Dosage: 2 TABLETS DAILY
  12. SEREVENT [Concomitant]
     Dosage: UNK
  13. SPIRONOLACTONE [Concomitant]
     Dosage: 25 MG, DAILY

REACTIONS (3)
  - Invasive ductal breast carcinoma [Fatal]
  - Breast cancer metastatic [Fatal]
  - Myocardial ischaemia [Fatal]
